FAERS Safety Report 7783242-7 (Version None)
Quarter: 2011Q3

REPORT INFORMATION
  Report Type: 
  Country: None (occurrence: None)
  Receive Date: 20110926
  Receipt Date: 20110919
  Transmission Date: 20111222
  Serious: Yes (Other)
  Sender: FDA-Public Use
  Company Number: NSR_00267_2011

PATIENT
  Age: 15 Month
  Sex: Female

DRUGS (2)
  1. PROPRANOLOL [Suspect]
     Indication: HAEMANGIOMA
     Dosage: (2 MG/KG QD) ; (DF) ; (2 MG/KG QD)
  2. PREDNISONE [Suspect]
     Indication: HAEMANGIOMA
     Dosage: (0.1 MG/KG QD) ; (DF) ; (0.5 MG/KG QD ORAL)
     Route: 048

REACTIONS (5)
  - HYPOGLYCAEMIA [None]
  - UNRESPONSIVE TO STIMULI [None]
  - ADRENAL INSUFFICIENCY [None]
  - NEOPLASM RECURRENCE [None]
  - HAEMANGIOMA [None]
